FAERS Safety Report 9519513 (Version 1)
Quarter: 2013Q3

REPORT INFORMATION
  Report Type: Spontaneous
  Country: US (occurrence: US)
  Receive Date: 20130912
  Receipt Date: 20130912
  Transmission Date: 20140515
  Serious: Yes (Hospitalization)
  Sender: FDA-Public Use
  Company Number: US-ABBOTT-13P-163-1143895-00

PATIENT
  Sex: Male
  Weight: 101.24 kg

DRUGS (10)
  1. HUMIRA [Suspect]
     Indication: PSORIATIC ARTHROPATHY
     Dates: start: 2011, end: 2012
  2. SYMPONI [Suspect]
     Indication: PSORIATIC ARTHROPATHY
     Dates: start: 2012, end: 201301
  3. ALLOPURINOL [Concomitant]
     Indication: GOUT
  4. METHADONE [Concomitant]
     Indication: PAIN
  5. LORTAB [Concomitant]
     Indication: PAIN
  6. COREG [Concomitant]
     Indication: HYPERTENSION
  7. WELLBUTRIN [Concomitant]
     Indication: INSOMNIA
  8. TOVIAZ [Concomitant]
     Indication: BLADDER SPASM
  9. VITAMIN B12 [Concomitant]
     Indication: ASTHENIA
  10. ASPIRIN [Concomitant]
     Indication: ISCHAEMIC HEART DISEASE PROPHYLAXIS

REACTIONS (3)
  - Hip fracture [Unknown]
  - Psoriasis [Not Recovered/Not Resolved]
  - Drug effect decreased [Unknown]
